FAERS Safety Report 4824436-X (Version None)
Quarter: 2005Q4

REPORT INFORMATION
  Report Type: 
  Country: None (occurrence: None)
  Receive Date: 20051108
  Receipt Date: 20051026
  Transmission Date: 20060501
  Serious: Yes (Hospitalization, Other)
  Sender: FDA-Public Use
  Company Number: S05-USA-03466-01

PATIENT
  Age: 39 Year
  Sex: Male

DRUGS (3)
  1. CELEXA [Suspect]
     Indication: BIPOLAR DISORDER
     Dosage: UNK
     Route: 065
     Dates: start: 20010101, end: 20030401
  2. CELEXA [Suspect]
     Indication: OBSESSIVE-COMPULSIVE DISORDER
     Dosage: UNK
     Route: 065
     Dates: start: 20010101, end: 20030401
  3. ZYPREXA [Suspect]
     Dosage: UNK
     Route: 065
     Dates: end: 20030401

REACTIONS (4)
  - CONDITION AGGRAVATED [None]
  - OBSESSIVE-COMPULSIVE DISORDER [None]
  - TARDIVE DYSKINESIA [None]
  - THERAPY NON-RESPONDER [None]
